FAERS Safety Report 25213510 (Version 5)
Quarter: 2025Q3

REPORT INFORMATION
  Report Type: Spontaneous
  Country: JP (occurrence: JP)
  Receive Date: 20250418
  Receipt Date: 20250721
  Transmission Date: 20251021
  Serious: Yes (Death, Hospitalization, Other)
  Sender: PFIZER
  Company Number: JP-PFIZER INC-PV202500023013

PATIENT
  Age: 72 Year
  Sex: Female

DRUGS (6)
  1. ELREXFIO [Suspect]
     Active Substance: ELRANATAMAB-BCMM
     Indication: Plasma cell myeloma
     Route: 058
     Dates: start: 20250220
  2. ELREXFIO [Suspect]
     Active Substance: ELRANATAMAB-BCMM
     Indication: Plasma cell myeloma
     Dates: start: 202502, end: 202504
  3. ALFAROL [Concomitant]
     Active Substance: ALFACALCIDOL
     Route: 048
  4. SULFAMETHOXAZOLE\TRIMETHOPRIM [Concomitant]
     Active Substance: SULFAMETHOXAZOLE\TRIMETHOPRIM
     Route: 048
  5. BIO-THREE [Concomitant]
     Active Substance: HERBALS
     Route: 048
  6. LOPERAMIDE HYDROCHLORIDE [Concomitant]
     Active Substance: LOPERAMIDE HYDROCHLORIDE

REACTIONS (7)
  - Hepatic function abnormal [Fatal]
  - Acute hepatic failure [Fatal]
  - Cytokine release syndrome [Recovered/Resolved]
  - Disseminated intravascular coagulation [Unknown]
  - Cardio-respiratory arrest [Unknown]
  - Rash [Unknown]
  - Blister [Unknown]

NARRATIVE: CASE EVENT DATE: 20250221
